FAERS Safety Report 11073108 (Version 1)
Quarter: 2015Q2

REPORT INFORMATION
  Report Type: Spontaneous
  Country: CH (occurrence: CH)
  Receive Date: 20150428
  Receipt Date: 20150428
  Transmission Date: 20150821
  Serious: Yes (Hospitalization, Disabling, Other)
  Sender: FDA-Public Use
  Company Number: CH-TEVA-556204ISR

PATIENT
  Age: 56 Year
  Sex: Female
  Weight: 73 kg

DRUGS (5)
  1. FLUOXETINE [Suspect]
     Active Substance: FLUOXETINE\FLUOXETINE HYDROCHLORIDE
     Indication: BIPOLAR DISORDER
     Dosage: 20 MILLIGRAM DAILY;
     Route: 048
  2. KLACID 250 MG [Concomitant]
     Dosage: 1000 MILLIGRAM DAILY;
     Route: 065
     Dates: start: 20140430, end: 201405
  3. TEGRETOL CR [Suspect]
     Active Substance: CARBAMAZEPINE
     Indication: BIPOLAR DISORDER
     Dosage: 800 MILLIGRAM DAILY;
     Route: 048
  4. CEFTRIAXONE SANDOZ [Concomitant]
     Active Substance: CEFTRIAXONE
     Dosage: 2 GRAM DAILY;
     Route: 042
     Dates: start: 20140430, end: 201405
  5. LITHIOFOR 660 MG COMPRIMES A ACTION PROLONGEE [Suspect]
     Active Substance: LITHIUM SULFATE
     Indication: BIPOLAR DISORDER
     Dosage: 990 MILLIGRAM DAILY;
     Route: 048
     Dates: end: 20140530

REACTIONS (11)
  - Diplopia [Recovered/Resolved]
  - Hypercalcaemia [Recovered/Resolved]
  - Somnolence [Recovered/Resolved]
  - Nystagmus [Recovered/Resolved]
  - Tremor [Recovered/Resolved]
  - Toxicity to various agents [Recovered/Resolved]
  - Oedema peripheral [Unknown]
  - Pyrexia [Unknown]
  - Renal failure [Not Recovered/Not Resolved]
  - Ataxia [Recovered/Resolved]
  - Pneumonia [Unknown]

NARRATIVE: CASE EVENT DATE: 20140430
